FAERS Safety Report 9478176 (Version 3)
Quarter: 2013Q4

REPORT INFORMATION
  Report Type: Spontaneous
  Country: US (occurrence: None)
  Receive Date: 20130815
  Receipt Date: 20131022
  Transmission Date: 20140711
  Serious: Yes (Hospitalization, Other)
  Sender: FDA-Public Use
  Company Number: 2013037443

PATIENT
  Sex: Female

DRUGS (19)
  1. PRIVIGEN [Suspect]
     Indication: IMMUNODEFICIENCY COMMON VARIABLE
     Dosage: (35 G 1X/4 WEEKS INTRAVENOUS (NOT OTHERWISE SPECIFIED)
     Route: 042
     Dates: start: 20130730
  2. CIPRO (CIPROFLOXACIN) [Concomitant]
  3. CELEBREX (CELECOXIB) [Concomitant]
  4. PATANASE (OLOPATADINE) [Concomitant]
  5. NASONEX (MOMETASONE FUROATE) [Concomitant]
  6. PRAVASTATIN (PRAVASTATIN) [Concomitant]
  7. ASPIRIN (ACETYLSALICYLIC ACID) [Concomitant]
  8. PROMETHAZINE (PROMETHAZINE) [Concomitant]
  9. VENTOLIN (SALBUTAMOL) [Concomitant]
  10. SYMBICORT [Concomitant]
  11. TOPROL (METOPROLOL SUCCINATE) [Concomitant]
  12. LEVOTHYROXINE (LEVOTHYROXINE) [Concomitant]
  13. TRIAMTERENE (TRIAMTERENE) [Concomitant]
  14. ALBUTEROL (SALBUTAMOL) [Concomitant]
  15. BENZONATATE (BENZONATATE) [Concomitant]
  16. IBUPROFEN (IBUPROFEN) [Concomitant]
  17. QVAR (BECLOMETASONE DIPROPIONATE) [Concomitant]
  18. DEXILANT (ALL OTHER THERAPEUTIC PRODUCTS) [Concomitant]
  19. MACRODANTIN (NITROFURANTOIN) [Concomitant]

REACTIONS (8)
  - Urinary tract infection [None]
  - Respiratory tract infection [None]
  - Ear infection [None]
  - Pneumonia [None]
  - Upper respiratory tract infection [None]
  - Pharyngitis [None]
  - Rhinitis [None]
  - Eye infection [None]
